FAERS Safety Report 7726702-7 (Version None)
Quarter: 2011Q3

REPORT INFORMATION
  Report Type: 
  Country: None (occurrence: None)
  Receive Date: 20110902
  Receipt Date: 20110830
  Transmission Date: 20111222
  Serious: Yes (Hospitalization, Other)
  Sender: FDA-Public Use
  Company Number: PHHY2011CA71267

PATIENT
  Age: 25 Year
  Sex: Female

DRUGS (3)
  1. ESTRADIOL [Suspect]
     Indication: HORMONE REPLACEMENT THERAPY
     Dosage: 2 MG, TID
     Route: 048
  2. ESTRADIOL [Suspect]
     Dosage: 6 MG, UNK
     Route: 048
  3. PROGESTERONE [Concomitant]
     Dosage: UNK UKN, UNK

REACTIONS (10)
  - WOUND ABSCESS [None]
  - MATERNAL EXPOSURE DURING PREGNANCY [None]
  - PSEUDOMONAS TEST POSITIVE [None]
  - PREMATURE LABOUR [None]
  - SEPSIS [None]
  - PREMATURE RUPTURE OF MEMBRANES [None]
  - KLEBSIELLA TEST POSITIVE [None]
  - BACTEROIDES TEST POSITIVE [None]
  - CHORIOAMNIONITIS [None]
  - FUNISITIS [None]
